FAERS Safety Report 7301891-7 (Version None)
Quarter: 2011Q1

REPORT INFORMATION
  Report Type: 
  Country: None (occurrence: None)
  Receive Date: 20110218
  Receipt Date: 20110209
  Transmission Date: 20110831
  Serious: Yes (Hospitalization, Other)
  Sender: FDA-Public Use
  Company Number: US-ROCHE-752534

PATIENT
  Sex: Female
  Weight: 83.5 kg

DRUGS (6)
  1. BONIVA [Suspect]
     Indication: OSTEOPOROSIS
     Route: 042
     Dates: start: 20070124, end: 20100527
  2. SYNTHROID [Concomitant]
     Indication: HYPOTHYROIDISM
     Route: 048
     Dates: start: 20040101
  3. NEXIUM [Concomitant]
     Dosage: DAILY
     Route: 048
  4. ACTIMMUNE [Concomitant]
     Indication: ASTHMA
     Dosage: DAILY AS REQUIRED (PRN)
     Route: 048
  5. ADVAIR [Concomitant]
     Indication: ASTHMA
     Dosage: DAILY AS REQUIRED (PRN)
     Route: 048
  6. CELEBREX [Concomitant]
     Indication: OSTEOARTHRITIS
     Dosage: AS REQUIRED (PRN)
     Route: 048

REACTIONS (4)
  - SPINAL COMPRESSION FRACTURE [None]
  - FEMUR FRACTURE [None]
  - PULMONARY EMBOLISM [None]
  - FRACTURE [None]
